FAERS Safety Report 5194257-X (Version None)
Quarter: 2006Q4

REPORT INFORMATION
  Report Type: 
  Country: None (occurrence: None)
  Receive Date: 20061228
  Receipt Date: 20061226
  Transmission Date: 20070319
  Serious: Yes (Other)
  Sender: FDA-Public Use
  Company Number: BR-BOEHRINGER INGELHEIM PHARMACEUTICALS, INC.-2006-BP-14956BR

PATIENT
  Age: 75 Year
  Sex: Male

DRUGS (4)
  1. MICARDIS [Suspect]
     Indication: HYPERTENSION
     Route: 048
     Dates: start: 20010101
  2. MICARDIS HCT [Suspect]
     Indication: HYPERTENSION
     Route: 048
     Dates: start: 20061214, end: 20061223
  3. CLORTALIDONA [Concomitant]
     Indication: HYPERTENSION
  4. METFORMINA [Concomitant]
     Indication: BLOOD GLUCOSE INCREASED

REACTIONS (5)
  - EYELID OEDEMA [None]
  - HYPERTENSION [None]
  - MALAISE [None]
  - OEDEMA PERIPHERAL [None]
  - THERAPEUTIC RESPONSE DECREASED [None]
